FAERS Safety Report 15299959 (Version 4)
Quarter: 2018Q3

REPORT INFORMATION
  Report Type: Report from Study
  Country: GE (occurrence: GE)
  Receive Date: 20180821
  Receipt Date: 20180925
  Transmission Date: 20181010
  Serious: Yes (Life-Threatening, Hospitalization, Disabling)
  Sender: FDA-Public Use
  Company Number: GE-ROCHE-2169758

PATIENT
  Age: 55 Year
  Sex: Female
  Weight: 90 kg

DRUGS (4)
  1. ATEZOLIZUMAB. [Suspect]
     Active Substance: ATEZOLIZUMAB
     Indication: BREAST CANCER
     Dosage: THE LAST DOSE OF ATEZOLIZUMAB PRIOR TO EVENT ONSET WAS ON 12/JUL/2018
     Route: 042
     Dates: start: 20180712, end: 20180712
  2. BLINDED ENTINOSTAT [Suspect]
     Active Substance: ENTINOSTAT
     Indication: BREAST CANCER
     Dosage: THE LAST DOSE OF BLINDED ENTINOSTAT PRIOR TO EVENT ONSET WAS ON 18/JUL/2018
     Route: 048
     Dates: start: 20180712, end: 20180718
  3. CARBOPLATINE [Concomitant]
     Active Substance: CARBOPLATIN
     Indication: DISEASE PROGRESSION
  4. GEMCITABINE [Concomitant]
     Active Substance: GEMCITABINE\GEMCITABINE HYDROCHLORIDE
     Indication: DISEASE PROGRESSION

REACTIONS (1)
  - Encephalopathy [Recovered/Resolved]

NARRATIVE: CASE EVENT DATE: 20180726
